FAERS Safety Report 20652093 (Version 1)
Quarter: 2022Q1

REPORT INFORMATION
  Report Type: Spontaneous
  Country: FR (occurrence: FR)
  Receive Date: 20220330
  Receipt Date: 20220330
  Transmission Date: 20220423
  Serious: Yes (Hospitalization)
  Sender: FDA-Public Use
  Company Number: None

PATIENT
  Age: 41 Year
  Sex: Female
  Weight: 61 kg

DRUGS (3)
  1. HYDROCORTISONE [Suspect]
     Active Substance: HYDROCORTISONE
     Indication: Adrenal insufficiency
     Route: 065
  2. BUDESONIDE\FORMOTEROL [Suspect]
     Active Substance: BUDESONIDE\FORMOTEROL
     Indication: Asthma
     Dosage: DUORESP SPIROMAX 160 MICROGRAMMES/4,5 MICROGRAMMES, POUDRE POUR INHALATION
     Route: 065
  3. LEVOTHYROXINE [Concomitant]
     Active Substance: LEVOTHYROXINE
     Indication: Hypothyroidism
     Dosage: LEVOTHYROX 50 MICROGRAMMES, COMPRIME SECABLE, LEVOTHYROXINE SODIQUE BREAKABLE TABLET

REACTIONS (1)
  - Brief psychotic disorder with marked stressors [Not Recovered/Not Resolved]

NARRATIVE: CASE EVENT DATE: 20220305
